FAERS Safety Report 8145651-6 (Version None)
Quarter: 2012Q1

REPORT INFORMATION
  Report Type: 
  Country: None (occurrence: None)
  Receive Date: 20120217
  Receipt Date: 20110422
  Transmission Date: 20120608
  Serious: No
  Sender: FDA-Public Use
  Company Number: US-ABBOTT-11P-163-0721065-00

PATIENT
  Sex: Male
  Weight: 80.812 kg

DRUGS (7)
  1. TERAZOSIN HCL [Concomitant]
     Indication: PRODUCT USED FOR UNKNOWN INDICATION
  2. ACTOS [Concomitant]
     Indication: PRODUCT USED FOR UNKNOWN INDICATION
  3. INSULIN [Concomitant]
     Indication: PRODUCT USED FOR UNKNOWN INDICATION
  4. SIMCOR [Suspect]
     Indication: BLOOD TRIGLYCERIDES INCREASED
  5. LISINOPRIL [Concomitant]
     Indication: PRODUCT USED FOR UNKNOWN INDICATION
  6. COLCHICINE [Suspect]
     Indication: GOUT
  7. SIMCOR [Suspect]
     Indication: HIGH DENSITY LIPOPROTEIN DECREASED
     Dosage: 500/20MG AFTER DINNER
     Dates: start: 20110301

REACTIONS (7)
  - DYSSTASIA [None]
  - PRURITUS [None]
  - GOUT [None]
  - DIARRHOEA [None]
  - BLOOD URIC ACID INCREASED [None]
  - FEELING HOT [None]
  - FLUSHING [None]
